FAERS Safety Report 8569708-0 (Version None)
Quarter: 2012Q3

REPORT INFORMATION
  Report Type: 
  Country: None (occurrence: None)
  Receive Date: 20120803
  Receipt Date: 20120523
  Transmission Date: 20120928
  Serious: No
  Sender: FDA-Public Use
  Company Number: US-ABBOTT-12P-163-0938142-00

PATIENT
  Sex: Male
  Weight: 98.064 kg

DRUGS (2)
  1. NIASPAN [Suspect]
     Indication: CORONARY ARTERIAL STENT INSERTION
     Dosage: AT BEDTIME
  2. NIASPAN [Suspect]
     Indication: BLOOD CHOLESTEROL ABNORMAL

REACTIONS (2)
  - PRURITUS [None]
  - FEELING HOT [None]
